FAERS Safety Report 26038135 (Version 1)
Quarter: 2025Q4

REPORT INFORMATION
  Report Type: Spontaneous
  Country: US (occurrence: US)
  Receive Date: 20251113
  Receipt Date: 20251113
  Transmission Date: 20260118
  Serious: No
  Sender: SANDOZ
  Company Number: US-SANDOZ-SDZ2025US084548

PATIENT
  Age: 24 Year
  Sex: Female
  Weight: 123.83 kg

DRUGS (14)
  1. MYCOPHENOLATE MOFETIL [Suspect]
     Active Substance: MYCOPHENOLATE MOFETIL
     Indication: Connective tissue disorder
     Dosage: 1000 MG, BID
     Route: 048
     Dates: start: 202508, end: 20251105
  2. ALBUTEROL [Concomitant]
     Active Substance: ALBUTEROL
     Indication: Asthma
     Dosage: 90 UG PRN WHEN SICK
     Route: 065
  3. AMLODIPINE [Concomitant]
     Active Substance: AMLODIPINE BESYLATE
     Indication: Connective tissue disorder
     Dosage: 5 MG, QD
     Route: 065
     Dates: start: 2025
  4. BENLYSTA [Concomitant]
     Active Substance: BELIMUMAB
     Indication: Systemic lupus erythematosus
     Dosage: 200 MG, QW
     Route: 065
     Dates: start: 2024
  5. GABAPENTIN [Concomitant]
     Active Substance: GABAPENTIN
     Indication: Pain
     Dosage: 400 MG, TID (PRIOR TO BECOMING PREGNANT)
     Route: 065
  6. HYDROXYCHLOROQUINE [Concomitant]
     Active Substance: HYDROXYCHLOROQUINE
     Indication: Connective tissue disorder
     Dosage: 400 MG AT BEDTIME
     Route: 065
     Dates: start: 2024
  7. LOSARTAN [Concomitant]
     Active Substance: LOSARTAN
     Indication: Connective tissue disorder
     Dosage: 100 MG, QD
     Route: 065
     Dates: start: 2024, end: 20251105
  8. MELATONIN [Concomitant]
     Active Substance: MELATONIN
     Indication: Sleep disorder
     Dosage: 10 MG AT BEDTIME
     Route: 065
     Dates: start: 2010
  9. METHYLPHENIDATE [Concomitant]
     Active Substance: METHYLPHENIDATE
     Indication: Attention deficit hyperactivity disorder
     Dosage: 54 MG, QD
     Route: 065
     Dates: start: 2020
  10. OZEMPIC [Concomitant]
     Active Substance: SEMAGLUTIDE
     Indication: Weight
     Dosage: 1 MG, QW
     Route: 065
     Dates: start: 2024
  11. PANTOPRAZOLE [Concomitant]
     Active Substance: PANTOPRAZOLE
     Indication: Gastrooesophageal reflux disease
     Dosage: 40 MG, QD
     Route: 065
     Dates: start: 2024
  12. PREDNISONE [Concomitant]
     Active Substance: PREDNISONE
     Indication: Connective tissue disorder
     Dosage: 5 MG, QD
     Route: 065
     Dates: start: 202507
  13. TRILEPTAL [Concomitant]
     Active Substance: OXCARBAZEPINE
     Indication: Affective disorder
     Dosage: 300 MG 2-TAB AM 3-TAB PM
     Route: 065
     Dates: start: 2020
  14. TYLENOL [Concomitant]
     Active Substance: ACETAMINOPHEN
     Indication: Pain
     Dosage: 1000 MG, BID
     Route: 065
     Dates: start: 2025

REACTIONS (1)
  - Exposure during pregnancy [Unknown]

NARRATIVE: CASE EVENT DATE: 20250518
